FAERS Safety Report 5277074-1 (Version None)
Quarter: 2007Q1

REPORT INFORMATION
  Report Type: 
  Country: None (occurrence: None)
  Receive Date: 20070327
  Receipt Date: 20070320
  Transmission Date: 20070707
  Serious: Yes (Other)
  Sender: FDA-Public Use
  Company Number: PHBS2006BR16420

PATIENT
  Age: 71 Year
  Sex: Female

DRUGS (2)
  1. HORMONES [Concomitant]
     Indication: BREAST CANCER METASTATIC
     Dosage: UNK, UNK
     Route: 065
  2. ZOMETA [Suspect]
     Indication: BREAST CANCER METASTATIC

REACTIONS (4)
  - BONE DISORDER [None]
  - HYPERBARIC OXYGEN THERAPY [None]
  - OSTEONECROSIS [None]
  - PAIN IN JAW [None]
